FAERS Safety Report 5154738-1 (Version None)
Quarter: 2006Q4

REPORT INFORMATION
  Report Type: 
  Country: None (occurrence: None)
  Receive Date: 20061115
  Receipt Date: 20061115
  Transmission Date: 20070319
  Serious: Yes (Hospitalization)
  Sender: FDA-Public Use
  Company Number: None

PATIENT
  Age: 23 Month
  Sex: Female
  Weight: 10.4327 kg

DRUGS (2)
  1. AMOXICILLIN/CLAVULANATE POTASSIU 600/5ML IVAX PHARMACEUTICALS [Suspect]
     Indication: EAR INFECTION
     Dosage: 4 MLS TWICE A DAY PO
     Route: 048
     Dates: start: 20061029, end: 20061111
  2. AMOXICILLIN/CLAVULANATE POTASSIU 600/5ML IVAX PHARMACEUTICALS [Suspect]
     Indication: SINUSITIS
     Dosage: 4 MLS TWICE A DAY PO
     Route: 048
     Dates: start: 20061029, end: 20061111

REACTIONS (6)
  - BODY TEMPERATURE INCREASED [None]
  - IRRITABILITY [None]
  - LETHARGY [None]
  - OEDEMA PERIPHERAL [None]
  - SWELLING FACE [None]
  - URTICARIA GENERALISED [None]
